FAERS Safety Report 8960715 (Version 1)
Quarter: 2012Q4

REPORT INFORMATION
  Report Type: Spontaneous
  Country: GB (occurrence: None)
  Receive Date: 20121130
  Receipt Date: 20121130
  Transmission Date: 20130627
  Serious: Yes (Death)
  Sender: FDA-Public Use
  Company Number: 1498702

PATIENT
  Age: 54 Year
  Sex: Male

DRUGS (7)
  1. DACARBAZINE [Suspect]
     Dosage: (not otherwise specified)
     Route: 042
     Dates: start: 20120509, end: 20120929
  2. VINBLASTINE SULFATE [Suspect]
     Dosage: (not otherwise specified)
     Route: 042
     Dates: start: 20120509, end: 20120929
  3. DOXORUBICIN HYDROCHLORIDE [Suspect]
     Dosage: (not otherwise specified)
     Route: 042
     Dates: start: 20120509, end: 20120929
  4. BLEOMYCIN [Suspect]
     Dosage: (not otherwise specified)
     Route: 042
     Dates: start: 20120509, end: 20120929
  5. TRUVADA [Concomitant]
  6. DARUNAVIR [Concomitant]
  7. (RITONAVIR) [Concomitant]

REACTIONS (2)
  - Respiratory failure [None]
  - Hypoxia [None]
